FAERS Safety Report 4520193-5 (Version None)
Quarter: 2004Q4

REPORT INFORMATION
  Report Type: 
  Country: None (occurrence: None)
  Receive Date: 20041027
  Receipt Date: 20040706
  Transmission Date: 20050328
  Serious: Yes (Life-Threatening, Hospitalization, Disabling, Other)
  Sender: FDA-Public Use
  Company Number: 2004-117348-NL

PATIENT
  Age: 31 Year
  Sex: Female
  Weight: 63.63 kg

DRUGS (6)
  1. PUREGON [Suspect]
     Indication: INFERTILITY FEMALE
     Dosage: 150 IU DAILY
     Dates: start: 20040630, end: 20040603
  2. PEPCID [Concomitant]
  3. VALTRAX [Concomitant]
  4. REPRONEX [Concomitant]
  5. HCG [Concomitant]
  6. BIRTH CONTROL PILLS [Concomitant]

REACTIONS (3)
  - ANXIETY [None]
  - PULMONARY EMBOLISM [None]
  - VENOUS THROMBOSIS LIMB [None]
